FAERS Safety Report 13884280 (Version 1)
Quarter: 2017Q3

REPORT INFORMATION
  Report Type: Spontaneous
  Country: US (occurrence: None)
  Receive Date: 20170815
  Receipt Date: 20170815
  Transmission Date: 20171127
  Serious: Yes (Hospitalization)
  Sender: FDA-Public Use
  Company Number: None

PATIENT
  Age: 20 Year
  Sex: Male

DRUGS (4)
  1. PENICILLIN VK [Concomitant]
     Active Substance: PENICILLIN V POTASSIUM
  2. JADENU [Suspect]
     Active Substance: DEFERASIROX
     Indication: LYMPHOCYTIC LEUKAEMIA
     Route: 048
     Dates: start: 20170114
  3. METHOTREXATE. [Concomitant]
     Active Substance: METHOTREXATE
  4. PEPCID [Concomitant]
     Active Substance: FAMOTIDINE

REACTIONS (1)
  - Blood count abnormal [None]

NARRATIVE: CASE EVENT DATE: 20170803
